FAERS Safety Report 15146716 (Version 1)
Quarter: 2018Q3

REPORT INFORMATION
  Report Type: Spontaneous
  Country: JP (occurrence: JP)
  Receive Date: 20180716
  Receipt Date: 20180716
  Transmission Date: 20181010
  Serious: Yes (Other)
  Sender: FDA-Public Use
  Company Number: JP-009507513-1807JPN001247J

PATIENT
  Age: 44 Year
  Sex: Male
  Weight: 58 kg

DRUGS (4)
  1. PRIVINA [Concomitant]
     Active Substance: NAPHAZOLINE NITRATE
     Dosage: UNK
     Route: 065
  2. SOVALDI [Suspect]
     Active Substance: SOFOSBUVIR
     Indication: CHRONIC HEPATITIS C
     Dosage: 1 DF, UNK
     Route: 048
     Dates: start: 20160824, end: 20160907
  3. SANBETASON [Concomitant]
     Active Substance: DEXAMETHASONE
     Dosage: UNK
     Route: 065
  4. REBETOL [Suspect]
     Active Substance: RIBAVIRIN
     Dosage: 600 MG, UNK
     Route: 048
     Dates: start: 20160824, end: 20160907

REACTIONS (2)
  - Hepatitis C [Unknown]
  - Drug ineffective [Unknown]
